FAERS Safety Report 5722879-3 (Version None)
Quarter: 2008Q2

REPORT INFORMATION
  Report Type: 
  Country: None (occurrence: None)
  Receive Date: 20080425
  Receipt Date: 20080402
  Transmission Date: 20081010
  Serious: Yes (Other)
  Sender: FDA-Public Use
  Company Number: US-1165724

PATIENT
  Sex: Male

DRUGS (3)
  1. NEVANAC [Suspect]
     Indication: UVEITIS
     Dosage: (OPHTHALMIC)
     Route: 047
     Dates: start: 20070501
  2. MURO 128 [Concomitant]
  3. PRED FORTA [Concomitant]

REACTIONS (2)
  - CATARACT OPERATION [None]
  - VISION BLURRED [None]
